FAERS Safety Report 24215946 (Version 1)
Quarter: 2024Q3

REPORT INFORMATION
  Report Type: Spontaneous
  Country: US (occurrence: None)
  Receive Date: 20240816
  Receipt Date: 20240816
  Transmission Date: 20241017
  Serious: No
  Sender: OREXO
  Company Number: US-Orexo US, Inc.-ORE202405-000023

PATIENT

DRUGS (1)
  1. ZUBSOLV [Suspect]
     Active Substance: BUPRENORPHINE HYDROCHLORIDE\NALOXONE HYDROCHLORIDE
     Indication: Product used for unknown indication
     Dosage: TAKE PILLS EVERYDAY
     Route: 065

REACTIONS (5)
  - Withdrawal syndrome [Unknown]
  - Therapeutic response decreased [Unknown]
  - Product taste abnormal [Unknown]
  - Product physical issue [Unknown]
  - Product solubility abnormal [Unknown]
